FAERS Safety Report 8209908-2 (Version None)
Quarter: 2012Q1

REPORT INFORMATION
  Report Type: 
  Country: None (occurrence: None)
  Receive Date: 20120314
  Receipt Date: 20120312
  Transmission Date: 20120608
  Serious: Yes (Other)
  Sender: FDA-Public Use
  Company Number: CA-ROCHE-1045761

PATIENT
  Sex: Male
  Weight: 105.4 kg

DRUGS (2)
  1. AVASTIN [Suspect]
     Indication: GLIOBLASTOMA
  2. AVASTIN [Suspect]
     Indication: MIXED OLIGO-ASTROCYTOMA
     Route: 042
     Dates: start: 20120113, end: 20120229

REACTIONS (3)
  - EPISTAXIS [None]
  - HAEMATOCHEZIA [None]
  - HAEMATURIA [None]
